FAERS Safety Report 5959933-7 (Version None)
Quarter: 2008Q4

REPORT INFORMATION
  Report Type: 
  Country: None (occurrence: None)
  Receive Date: 20081112
  Receipt Date: 20080321
  Transmission Date: 20090506
  Serious: Yes (Hospitalization)
  Sender: FDA-Public Use
  Company Number: US-JNJFOC-20080603369

PATIENT
  Age: 49 Year
  Sex: Male
  Weight: 101 kg

DRUGS (13)
  1. IBUPROFEN TABLETS [Suspect]
     Indication: DRUG USE FOR UNKNOWN INDICATION
     Dosage: , IN 1 AS NECESSARY, ORAL
     Route: 048
     Dates: start: 20060619, end: 20061101
  2. TYLENOL (CAPLET) [Suspect]
     Indication: DRUG USE FOR UNKNOWN INDICATION
     Dosage: , IN 1 AS NECESSARY, ORAL
     Route: 048
     Dates: start: 20060619, end: 20061101
  3. ALEVE (CAPLET) [Suspect]
     Indication: DRUG USE FOR UNKNOWN INDICATION
     Dosage: 220 MG, IN 1 AS NECESSARY
     Dates: start: 20060706, end: 20061101
  4. MONOCLONAL ANTIBODIES (ALL OTHER THERAPEUTIC PRODUCTS) [Concomitant]
  5. ZOCOR [Concomitant]
  6. XANAX [Concomitant]
  7. HYDROMORPHONE HCL [Concomitant]
  8. ATIVAN [Concomitant]
  9. NEURONTIN [Concomitant]
  10. SENOKOT S (SENOKOT-S) [Concomitant]
  11. DURAGESIC-100 [Concomitant]
  12. COMPAZINE [Concomitant]
  13. MORPHINE [Concomitant]

REACTIONS (1)
  - BLOOD CREATININE INCREASED [None]
